FAERS Safety Report 4523606-8 (Version None)
Quarter: 2004Q4

REPORT INFORMATION
  Report Type: 
  Country: None (occurrence: None)
  Receive Date: 20041210
  Receipt Date: 20041210
  Transmission Date: 20050328
  Serious: Yes (Hospitalization)
  Sender: FDA-Public Use
  Company Number: None

PATIENT
  Age: 56 Year
  Sex: Female
  Weight: 63.05 kg

DRUGS (6)
  1. FASLODEX [Suspect]
     Indication: LUNG NEOPLASM MALIGNANT
     Dosage: 250 MG Q MONTH IM
     Route: 030
     Dates: start: 20040908, end: 20041117
  2. IRESSA [Suspect]
     Indication: LUNG NEOPLASM MALIGNANT
     Dosage: 250 MG Q DAY PO
     Route: 048
     Dates: start: 20040908, end: 20041208
  3. ZOLOFT [Concomitant]
  4. FENTANYL [Concomitant]
  5. MORPHINE SULFATE [Concomitant]
  6. DEXAMETHASONE [Concomitant]

REACTIONS (5)
  - ASTHENIA [None]
  - DISEASE PROGRESSION [None]
  - FAECAL INCONTINENCE [None]
  - SPINAL CORD COMPRESSION [None]
  - URINARY INCONTINENCE [None]
